FAERS Safety Report 8352359-0 (Version None)
Quarter: 2012Q2

REPORT INFORMATION
  Report Type: 
  Country: None (occurrence: None)
  Receive Date: 20120511
  Receipt Date: 20120507
  Transmission Date: 20120825
  Serious: Yes (Hospitalization, Other)
  Sender: FDA-Public Use
  Company Number: US-PFIZER INC-2012110203

PATIENT
  Sex: Male
  Weight: 71.655 kg

DRUGS (4)
  1. XANAX [Concomitant]
     Indication: FEELING OF RELAXATION
     Dosage: 2 MG, 3X/DAY
  2. RESTORIL [Concomitant]
     Dosage: 30 MG, 1X/DAY
  3. METHADONE [Concomitant]
     Dosage: 10 MG, 9X/DAY
  4. LYRICA [Suspect]
     Indication: PAIN
     Dosage: 75 MG, 1X/DAY
     Route: 048
     Dates: start: 20110101, end: 20120401

REACTIONS (10)
  - HYPERHIDROSIS [None]
  - WITHDRAWAL SYNDROME [None]
  - PYREXIA [None]
  - PAIN [None]
  - MENTAL DISORDER [None]
  - CHILLS [None]
  - DEPRESSION [None]
  - PNEUMONIA [None]
  - RESTLESSNESS [None]
  - DRUG INEFFECTIVE [None]
